FAERS Safety Report 7327761-6 (Version None)
Quarter: 2011Q1

REPORT INFORMATION
  Report Type: 
  Country: None (occurrence: None)
  Receive Date: 20110303
  Receipt Date: 20110222
  Transmission Date: 20110831
  Serious: Yes (Death, Hospitalization)
  Sender: FDA-Public Use
  Company Number: IL-US-EMD SERONO, INC.-7043307

PATIENT
  Age: 60 Year
  Sex: Female

DRUGS (2)
  1. REBIF [Suspect]
     Indication: RELAPSING-REMITTING MULTIPLE SCLEROSIS
     Route: 058
     Dates: start: 20080101, end: 20110101
  2. REBIF [Suspect]
     Route: 058
     Dates: start: 20110201, end: 20110221

REACTIONS (3)
  - DYSPNOEA [None]
  - PNEUMONIA [None]
  - HYPERTENSION [None]
